FAERS Safety Report 19823650 (Version 1)
Quarter: 2021Q3

REPORT INFORMATION
  Report Type: Spontaneous
  Country: IT (occurrence: IT)
  Receive Date: 20210913
  Receipt Date: 20210913
  Transmission Date: 20211014
  Serious: No
  Sender: FDA-Public Use
  Company Number: IT-LUPIN PHARMACEUTICALS INC.-2021-16951

PATIENT
  Age: 44 Year
  Sex: Male

DRUGS (8)
  1. TRAMADOL. [Concomitant]
     Active Substance: TRAMADOL
     Indication: WITHDRAWAL SYNDROME
     Dosage: 50 MILLIGRAM, QD
     Route: 065
  2. CLOMIPRAMINE [Concomitant]
     Active Substance: CLOMIPRAMINE
     Indication: WITHDRAWAL SYNDROME
     Dosage: 75 MILLIGRAM, QD
     Route: 065
  3. BUPROPION. [Suspect]
     Active Substance: BUPROPION
     Indication: WITHDRAWAL SYNDROME
     Dosage: 150 MILLIGRAM, QD
     Route: 065
  4. PREGABALIN. [Concomitant]
     Active Substance: PREGABALIN
     Indication: WITHDRAWAL SYNDROME
     Dosage: 25 MILLIGRAM, BID
     Route: 065
  5. BUPROPION. [Suspect]
     Active Substance: BUPROPION
     Dosage: 300 MILLIGRAM, QD
     Route: 065
  6. PREGABALIN. [Concomitant]
     Active Substance: PREGABALIN
     Dosage: 75 MILLIGRAM, BID
     Route: 065
  7. TRAZODONE [Concomitant]
     Active Substance: TRAZODONE HYDROCHLORIDE
     Indication: WITHDRAWAL SYNDROME
     Dosage: 300 MILLIGRAM, QD (IN THE EVENING), CONTROLLED?RELEASE
     Route: 065
  8. TRAMADOL. [Concomitant]
     Active Substance: TRAMADOL
     Dosage: 100 MILLIGRAM, BID
     Route: 065

REACTIONS (2)
  - Drug ineffective [Unknown]
  - Off label use [None]
